FAERS Safety Report 11255175 (Version 3)
Quarter: 2016Q3

REPORT INFORMATION
  Report Type: Spontaneous
  Country: US (occurrence: US)
  Receive Date: 20150709
  Receipt Date: 20160912
  Transmission Date: 20161109
  Serious: Yes (Death, Hospitalization)
  Sender: FDA-Public Use
  Company Number: US-JNJFOC-20150704849

PATIENT
  Age: 74 Year
  Sex: Female

DRUGS (1)
  1. XARELTO [Suspect]
     Active Substance: RIVAROXABAN
     Indication: PRODUCT USED FOR UNKNOWN INDICATION
     Dosage: APPROXIMATELY 10MG-20MG.
     Route: 048
     Dates: start: 201504, end: 201504

REACTIONS (1)
  - Internal haemorrhage [Fatal]

NARRATIVE: CASE EVENT DATE: 20150425
